FAERS Safety Report 9416369 (Version 12)
Quarter: 2014Q2

REPORT INFORMATION
  Report Type: Spontaneous
  Country: US (occurrence: US)
  Receive Date: 20130724
  Receipt Date: 20140520
  Transmission Date: 20141212
  Serious: No
  Sender: FDA-Public Use
  Company Number: US-PFIZER INC-2013212405

PATIENT
  Age: 61 Year
  Sex: Female
  Weight: 56.7 kg

DRUGS (8)
  1. PREMARIN [Suspect]
     Indication: HORMONE REPLACEMENT THERAPY
     Dosage: 1.25 MG, 1X/DAY
     Route: 048
  2. PREMARIN [Suspect]
     Dosage: UNK
  3. PREMARIN [Suspect]
     Dosage: 1.25 MG, 1X/DAY
     Route: 048
  4. PREMARIN VAGINAL CREAM [Concomitant]
     Indication: HORMONE REPLACEMENT THERAPY
     Dosage: 0.625 MG, 1X/DAY
     Route: 067
  5. PREMARIN VAGINAL CREAM [Concomitant]
     Indication: VULVOVAGINAL DRYNESS
  6. SYNTHROID [Concomitant]
     Indication: HYPOTHYROIDISM
     Dosage: 100 UG , 1X/DAY
     Route: 048
  7. ASPIRIN [Concomitant]
     Dosage: 81 MG, 1X/DAY
     Route: 048
  8. VOLTAREN [Concomitant]
     Indication: ARTHRITIS
     Dosage: UNK, AS NEEDED
     Route: 061

REACTIONS (10)
  - Allergy to plants [Unknown]
  - Seasonal allergy [Unknown]
  - Product quality issue [Unknown]
  - Drug ineffective [Unknown]
  - Drug effect decreased [Unknown]
  - Rash [Unknown]
  - Sleep disorder [Recovered/Resolved]
  - Disturbance in attention [Recovered/Resolved]
  - Vulvovaginal dryness [Recovered/Resolved]
  - Dry skin [Recovered/Resolved]
